FAERS Safety Report 7944792-3 (Version None)
Quarter: 2011Q4

REPORT INFORMATION
  Report Type: 
  Country: None (occurrence: None)
  Receive Date: 20111129
  Receipt Date: 20111123
  Transmission Date: 20120403
  Serious: Yes (Hospitalization)
  Sender: FDA-Public Use
  Company Number: FR-BRISTOL-MYERS SQUIBB COMPANY-16248908

PATIENT
  Age: 83 Year
  Sex: Female

DRUGS (11)
  1. LASIX [Concomitant]
  2. NITROGLYCERIN [Concomitant]
  3. COUMADIN [Suspect]
     Route: 048
     Dates: start: 20111001, end: 20111107
  4. POTASSIUM CHLORIDE [Concomitant]
  5. NOVORAPID [Concomitant]
  6. OLMESARTAN MEDOXOMIL [Concomitant]
  7. PANTOPRAZOLE [Concomitant]
  8. LEVOTHYROXINE SODIUM [Concomitant]
  9. ATORVASTATIN CALCIUM [Concomitant]
  10. NOVOLOG MIX 70/30 [Concomitant]
  11. CELECTOL [Concomitant]

REACTIONS (3)
  - ANAEMIA [None]
  - INTERNATIONAL NORMALISED RATIO INCREASED [None]
  - MELAENA [None]
